FAERS Safety Report 17549634 (Version 1)
Quarter: 2020Q1

REPORT INFORMATION
  Report Type: Spontaneous
  Country: US (occurrence: US)
  Receive Date: 20200317
  Receipt Date: 20200317
  Transmission Date: 20200409
  Serious: Yes (Hospitalization, Other)
  Sender: FDA-Public Use
  Company Number: US-MYLANLABS-2020M1027098

PATIENT
  Sex: Male
  Weight: 121 kg

DRUGS (10)
  1. ISOSORBIDE MONONITRATE. [Concomitant]
     Active Substance: ISOSORBIDE MONONITRATE
     Dosage: UNK (TORRENT)
  2. AMIODARONE [Concomitant]
     Active Substance: AMIODARONE
     Dosage: UNK (AUROBINDO )
  3. BUMETANIDE. [Concomitant]
     Active Substance: BUMETANIDE
     Dosage: UNK (AUROBINDO)
  4. FLOMAX [Concomitant]
     Active Substance: TAMSULOSIN HYDROCHLORIDE
     Dosage: UNK (ZYDUS )
  5. ELIQUIS [Concomitant]
     Active Substance: APIXABAN
     Dosage: UNK (BRISTOL-MYERS )
  6. QUINAPRIL. [Concomitant]
     Active Substance: QUINAPRIL
     Dosage: UNK (LUPIN)
  7. METOPROLOL SUCCINATE EXTENDED-RELEASE TABLETS, USP [Suspect]
     Active Substance: METOPROLOL SUCCINATE
     Indication: HYPERTENSION
     Dosage: ONCE A DAY
     Route: 048
  8. LOSARTAN. [Concomitant]
     Active Substance: LOSARTAN
     Dosage: UNK (TORRENT)
  9. EMSAM [Suspect]
     Active Substance: SELEGILINE
     Indication: MAJOR DEPRESSION
     Dosage: 1 PATCH EVERY 24 HOURS
     Route: 062
  10. DUTASTERIDE. [Concomitant]
     Active Substance: DUTASTERIDE
     Dosage: UNK (AMNEAL )

REACTIONS (3)
  - Cardiac failure [Not Recovered/Not Resolved]
  - Depressed mood [Not Recovered/Not Resolved]
  - Drug ineffective [Not Recovered/Not Resolved]
